FAERS Safety Report 7618648-X (Version None)
Quarter: 2011Q3

REPORT INFORMATION
  Report Type: 
  Country: None (occurrence: None)
  Receive Date: 20110718
  Receipt Date: 20110714
  Transmission Date: 20111222
  Serious: Yes (Other)
  Sender: FDA-Public Use
  Company Number: DE-SANOFI-AVENTIS-2011SA044770

PATIENT
  Sex: Male

DRUGS (7)
  1. HYDROCHLOROTHIAZIDE [Concomitant]
     Route: 048
  2. FUROSEMIDE [Concomitant]
     Route: 048
  3. BISOPROLOL [Concomitant]
     Route: 048
  4. MARCUMAR [Concomitant]
     Route: 048
  5. MULTAQ [Suspect]
     Indication: ATRIAL FIBRILLATION
     Route: 048
     Dates: end: 20110401
  6. PANTOPRAZOLE [Concomitant]
     Route: 048
  7. LERCANIDIPINE [Concomitant]
     Route: 048

REACTIONS (3)
  - UNDERDOSE [None]
  - DRUG LEVEL DECREASED [None]
  - ATRIAL FIBRILLATION [None]
